FAERS Safety Report 7083804-9 (Version None)
Quarter: 2010Q4

REPORT INFORMATION
  Report Type: 
  Country: None (occurrence: None)
  Receive Date: 20101104
  Receipt Date: 20101101
  Transmission Date: 20110411
  Serious: Yes (Other)
  Sender: FDA-Public Use
  Company Number: US-WYE-H18495110

PATIENT
  Sex: Female
  Weight: 53.57 kg

DRUGS (5)
  1. PREMARIN [Suspect]
     Indication: OESTROGEN THERAPY
     Route: 048
     Dates: start: 19700101, end: 20060101
  2. PREMARIN [Suspect]
     Route: 048
     Dates: start: 20100801, end: 20100927
  3. PREMARIN [Suspect]
     Route: 048
     Dates: start: 20100927
  4. ACETAMINOPHEN [Concomitant]
  5. ENABLEX [Concomitant]

REACTIONS (3)
  - BREAST TENDERNESS [None]
  - CYSTOCELE [None]
  - SURGERY [None]
